FAERS Safety Report 5252948-6 (Version None)
Quarter: 2007Q1

REPORT INFORMATION
  Report Type: 
  Country: None (occurrence: None)
  Receive Date: 20070301
  Receipt Date: 20070220
  Transmission Date: 20070707
  Serious: Yes (Other)
  Sender: FDA-Public Use
  Company Number: 2007SE01091

PATIENT

DRUGS (1)
  1. SEROQUEL [Suspect]
     Route: 048
     Dates: start: 20060101

REACTIONS (1)
  - NEUTROPHIL COUNT DECREASED [None]
